FAERS Safety Report 10143668 (Version 1)
Quarter: 2014Q2

REPORT INFORMATION
  Report Type: Spontaneous
  Country: US (occurrence: US)
  Receive Date: 20140430
  Receipt Date: 20140430
  Transmission Date: 20141212
  Serious: No
  Sender: FDA-Public Use
  Company Number: US-PFIZER INC-2014117690

PATIENT
  Age: 64 Year
  Sex: Female

DRUGS (8)
  1. XELJANZ [Suspect]
     Indication: RHEUMATOID ARTHRITIS
     Dosage: 5 MG, 2X/DAY
     Route: 048
     Dates: start: 201403, end: 201404
  2. CALTRATE 600 [Concomitant]
     Dosage: 600 MG
  3. SIMVASTATIN [Concomitant]
     Dosage: 10 MG
  4. VITAMIN D3 [Concomitant]
     Dosage: UNK
  5. ASPIRIN [Concomitant]
     Dosage: 81 MG
  6. METHOTREXATE [Concomitant]
     Dosage: UNK
  7. FUROSEMIDE [Concomitant]
     Dosage: UNK
  8. ALLOPURINOL [Concomitant]
     Dosage: UNK

REACTIONS (5)
  - Myalgia [Unknown]
  - Muscular weakness [Unknown]
  - Back pain [Unknown]
  - Chromaturia [Unknown]
  - Ear discomfort [Unknown]
